FAERS Safety Report 8862462 (Version 1)
Quarter: 2012Q4

REPORT INFORMATION
  Report Type: 
  Country: US (occurrence: US)
  Receive Date: 20121026
  Receipt Date: 20121026
  Transmission Date: 20130627
  Serious: Yes (Hospitalization)
  Sender: FDA-Public Use
  Company Number: US-BAYER-2012-112591

PATIENT
  Age: 35 Year
  Sex: Female
  Weight: 99.77 kg

DRUGS (6)
  1. YASMIN [Suspect]
  2. SYNTHROID [Concomitant]
  3. ZETIA [Concomitant]
  4. LEVAQUIN [Concomitant]
     Indication: PRODUCTIVE COUGH
  5. TUSSIONEX [Concomitant]
     Indication: PRODUCTIVE COUGH
  6. PERCOCET [Concomitant]

REACTIONS (1)
  - Pulmonary embolism [None]
